FAERS Safety Report 7255104-5 (Version None)
Quarter: 2011Q1

REPORT INFORMATION
  Report Type: 
  Country: None (occurrence: None)
  Receive Date: 20110129
  Receipt Date: 20100209
  Transmission Date: 20110831
  Serious: No
  Sender: FDA-Public Use
  Company Number: US-ABBOTT-10P-163-0625155-00

PATIENT
  Sex: Male
  Weight: 82.628 kg

DRUGS (4)
  1. ASPIRIN [Concomitant]
     Indication: FLUSHING
  2. ASPIRIN [Concomitant]
     Indication: PROPHYLAXIS
  3. HUMIRA [Suspect]
     Indication: PSORIASIS
     Dates: start: 20090201
  4. NIASPAN [Concomitant]
     Indication: BLOOD TRIGLYCERIDES INCREASED

REACTIONS (2)
  - RESPIRATORY TRACT CONGESTION [None]
  - NASOPHARYNGITIS [None]
